FAERS Safety Report 24234079 (Version 2)
Quarter: 2024Q3

REPORT INFORMATION
  Report Type: Spontaneous
  Country: RU (occurrence: RU)
  Receive Date: 20240821
  Receipt Date: 20240828
  Transmission Date: 20241016
  Serious: Yes (Other)
  Sender: MERCK KGAA
  Company Number: RU-Merck Healthcare KGaA-2024042701

PATIENT
  Age: 32 Year
  Sex: Female
  Weight: 45 kg

DRUGS (12)
  1. EUTHYROX [Suspect]
     Active Substance: LEVOTHYROXINE SODIUM
     Indication: Thyroid disorder
     Dates: start: 20240318, end: 20240717
  2. DUPHASTON [Suspect]
     Active Substance: DYDROGESTERONE
     Indication: Abortion spontaneous
     Dosage: PREGNANCY PERIOD AT THE TIME OF ADMISSION: 1 (TRIMESTER)
     Dates: start: 20240320, end: 20240424
  3. DUPHASTON [Suspect]
     Active Substance: DYDROGESTERONE
     Dates: start: 20240425, end: 20240626
  4. UTROGESTAN [Suspect]
     Active Substance: PROGESTERONE
     Indication: Postponement of preterm delivery
     Dosage: PREGNANCY PERIOD AT THE TIME OF ADMINISTRATION: 2 (TRIMESTER)
     Route: 067
     Dates: start: 20240627, end: 20240717
  5. BROMELAINS\CHYMOTRYPSIN\DIASTASE\LIPASE\PANCRELIPASE\PAPAIN\TRYPSIN [Suspect]
     Active Substance: BROMELAINS\CHYMOTRYPSIN\DIASTASE\LIPASE\PANCRELIPASE\PAPAIN\TRYPSIN
     Indication: Retroplacental haematoma
     Dosage: PREGNANCY PERIOD AT THE TIME OF ADMINISTRATION: 2 (TRIMESTER)
     Dates: start: 20240619, end: 20240717
  6. POTASSIUM IODIDE [Suspect]
     Active Substance: POTASSIUM IODIDE
     Indication: Iodine deficiency
     Dates: start: 20240318, end: 20240717
  7. ETHAMSYLATE [Suspect]
     Active Substance: ETHAMSYLATE
     Indication: Retroplacental haematoma
     Route: 030
     Dates: start: 20240320, end: 20240324
  8. DEQUALINIUM CHLORIDE [Suspect]
     Active Substance: DEQUALINIUM CHLORIDE
     Indication: Prophylaxis
     Route: 067
     Dates: start: 20240320, end: 20240325
  9. BENZOCAINE\INTERFERON ALFA-2B\TAURINE [Suspect]
     Active Substance: BENZOCAINE\INTERFERON ALFA-2B\TAURINE
     Indication: Oligohydramnios
     Dosage: PREGNANCY PERIOD AT THE TIME OF ADMINISTRATION: 2 (TRIMESTER)
     Route: 067
     Dates: start: 20240606, end: 20240615
  10. IRON POLYMALTOSE [Suspect]
     Active Substance: IRON POLYMALTOSE
     Indication: Iron deficiency anaemia
     Dosage: PREGNANCY PERIOD AT THE TIME OF ADMINISTRATION: 2 (TRIMESTER)
     Route: 048
  11. POTASSIUM IODIDE [Concomitant]
     Active Substance: POTASSIUM IODIDE
     Indication: Product used for unknown indication
  12. FOLIC ACID [Concomitant]
     Active Substance: FOLIC ACID
     Indication: Product used for unknown indication

REACTIONS (1)
  - Foetal death [Recovered/Resolved]

NARRATIVE: CASE EVENT DATE: 20240717
